FAERS Safety Report 5094703-6 (Version None)
Quarter: 2006Q3

REPORT INFORMATION
  Report Type: 
  Country: None (occurrence: None)
  Receive Date: 20060731
  Receipt Date: 20060420
  Transmission Date: 20061208
  Serious: No
  Sender: FDA-Public Use
  Company Number: 2006PV012420

PATIENT
  Age: 67 Year
  Sex: Female
  Weight: 66.6788 kg

DRUGS (7)
  1. BYETTA [Suspect]
     Indication: DIABETES MELLITUS NON-INSULIN-DEPENDENT
     Dosage: SEE IMAGE
     Route: 058
     Dates: start: 20060301, end: 20060413
  2. BYETTA [Suspect]
     Indication: DIABETES MELLITUS NON-INSULIN-DEPENDENT
     Dosage: SEE IMAGE
     Route: 058
     Dates: start: 20060414
  3. BYETTA [Suspect]
     Indication: DIABETES MELLITUS NON-INSULIN-DEPENDENT
     Dosage: SEE IMAGE
     Route: 058
     Dates: start: 20060414
  4. BYETTA [Suspect]
     Indication: DIABETES MELLITUS NON-INSULIN-DEPENDENT
     Dosage: SEE IMAGE
     Route: 058
     Dates: start: 20060414
  5. SYNTHROID [Concomitant]
  6. TOPROL-XL [Concomitant]
  7. VALIUM [Concomitant]

REACTIONS (11)
  - BLOOD PRESSURE INCREASED [None]
  - DECREASED APPETITE [None]
  - DIARRHOEA [None]
  - ERUCTATION [None]
  - FEELING JITTERY [None]
  - FLATULENCE [None]
  - HEADACHE [None]
  - INJECTION SITE BRUISING [None]
  - INJECTION SITE PAIN [None]
  - NAUSEA [None]
  - WEIGHT DECREASED [None]
